FAERS Safety Report 7643096-6 (Version None)
Quarter: 2011Q3

REPORT INFORMATION
  Report Type: 
  Country: None (occurrence: None)
  Receive Date: 20110728
  Receipt Date: 20110719
  Transmission Date: 20111222
  Serious: Yes (Other)
  Sender: FDA-Public Use
  Company Number: US-ASTRAZENECA-2011SE42978

PATIENT
  Age: 35 Year
  Sex: Male

DRUGS (9)
  1. DIVALPROAX EC [Concomitant]
  2. DEPAKOTE [Concomitant]
  3. LEVITIRACETAM [Concomitant]
  4. SEROQUEL [Suspect]
     Indication: BRAIN NEOPLASM MALIGNANT
     Route: 048
  5. DEPAKOTE [Concomitant]
  6. SERTREALINE [Concomitant]
  7. HALOPERIDOL [Concomitant]
  8. TARAZA [Concomitant]
  9. ATOPOR [Concomitant]
     Indication: CONVULSION

REACTIONS (5)
  - WALKING DISABILITY [None]
  - GENERAL PHYSICAL HEALTH DETERIORATION [None]
  - SPEECH DISORDER [None]
  - OFF LABEL USE [None]
  - VISUAL FIELD DEFECT [None]
